FAERS Safety Report 6422836-8 (Version None)
Quarter: 2009Q4

REPORT INFORMATION
  Report Type: 
  Country: None (occurrence: None)
  Receive Date: 20091102
  Receipt Date: 20091021
  Transmission Date: 20100525
  Serious: Yes (Hospitalization, Disabling, Other)
  Sender: FDA-Public Use
  Company Number: US-ROCHE-408667

PATIENT
  Sex: Female
  Weight: 64.9 kg

DRUGS (8)
  1. ACCUTANE [Suspect]
     Route: 048
     Dates: start: 19920708, end: 19921101
  2. ACCUTANE [Suspect]
     Route: 048
     Dates: start: 20000126, end: 20000622
  3. BIRTH CONTROL PILLS [Concomitant]
     Indication: ORAL CONTRACEPTION
     Route: 048
  4. ORTHO TRI-CYCLEN [Concomitant]
     Indication: CONTRACEPTION
     Dates: start: 19991012
  5. PHENERGAN HCL [Concomitant]
     Dosage: TAKEN EVERY 4-6 HOURS PRN.
     Dates: start: 19991012
  6. TYLENOL [Concomitant]
     Dates: start: 20000107
  7. ZANTAC [Concomitant]
     Dates: start: 20000107
  8. IBUPROFEN [Concomitant]
     Indication: MUSCULOSKELETAL PAIN

REACTIONS (24)
  - ADENOMA BENIGN [None]
  - ARTHRITIS [None]
  - BLINDNESS [None]
  - CHRONIC FATIGUE SYNDROME [None]
  - COLITIS [None]
  - COLITIS ULCERATIVE [None]
  - DIZZINESS [None]
  - DRY SKIN [None]
  - ECZEMA [None]
  - GASTRITIS [None]
  - GASTROINTESTINAL DISORDER [None]
  - GASTROOESOPHAGEAL REFLUX DISEASE [None]
  - HAEMATEMESIS [None]
  - HEADACHE [None]
  - HERNIA [None]
  - HYPOAESTHESIA [None]
  - INFLAMMATORY BOWEL DISEASE [None]
  - INSOMNIA [None]
  - INTESTINAL HAEMORRHAGE [None]
  - IRRITABLE BOWEL SYNDROME [None]
  - LIP DRY [None]
  - RECTAL HAEMORRHAGE [None]
  - VOMITING [None]
  - WEIGHT DECREASED [None]
